FAERS Safety Report 5524957-0 (Version None)
Quarter: 2007Q4

REPORT INFORMATION
  Report Type: 
  Country: None (occurrence: None)
  Receive Date: 20071126
  Receipt Date: 20071114
  Transmission Date: 20080405
  Serious: No
  Sender: FDA-Public Use
  Company Number: NL-ELI_LILLY_AND_COMPANY-NL200704001402

PATIENT
  Sex: Male
  Weight: 95 kg

DRUGS (3)
  1. ZYPREXA [Suspect]
     Indication: SCHIZOPHRENIA
     Dosage: 10 MG, UNK
     Route: 048
     Dates: start: 20041014
  2. ZYPREXA [Suspect]
     Dosage: 5 MG, UNK
  3. PANTOPRAZOLE SODIUM [Concomitant]
     Indication: STOMACH DISCOMFORT

REACTIONS (1)
  - THROMBOCYTOPENIA [None]
